FAERS Safety Report 26149992 (Version 1)
Quarter: 2025Q4

REPORT INFORMATION
  Report Type: Spontaneous
  Country: GB (occurrence: GB)
  Receive Date: 20251212
  Receipt Date: 20251212
  Transmission Date: 20260117
  Serious: Yes (Other)
  Sender: MYLAN
  Company Number: None

PATIENT
  Age: 46 Year
  Sex: Female
  Weight: 75 kg

DRUGS (36)
  1. DOXAZOSIN [Suspect]
     Active Substance: DOXAZOSIN MESYLATE
     Indication: Ill-defined disorder
     Dosage: UNK
  2. DOXAZOSIN [Suspect]
     Active Substance: DOXAZOSIN MESYLATE
     Dosage: UNK
     Route: 065
  3. DOXAZOSIN [Suspect]
     Active Substance: DOXAZOSIN MESYLATE
     Dosage: UNK
     Route: 065
  4. DOXAZOSIN [Suspect]
     Active Substance: DOXAZOSIN MESYLATE
     Dosage: UNK
  5. CYANOCOBALAMIN [Concomitant]
     Active Substance: CYANOCOBALAMIN
     Indication: Ill-defined disorder
     Dosage: 2 DOSAGE FORM, QD (TAKE 2 TABLETS, ONCE DAILY, BETWEEN MEALS, BOOK...)
     Dates: start: 20251121
  6. CYANOCOBALAMIN [Concomitant]
     Active Substance: CYANOCOBALAMIN
     Dosage: 2 DOSAGE FORM, QD (TAKE 2 TABLETS, ONCE DAILY, BETWEEN MEALS, BOOK...)
     Route: 065
     Dates: start: 20251121
  7. CYANOCOBALAMIN [Concomitant]
     Active Substance: CYANOCOBALAMIN
     Dosage: 2 DOSAGE FORM, QD (TAKE 2 TABLETS, ONCE DAILY, BETWEEN MEALS, BOOK...)
     Route: 065
     Dates: start: 20251121
  8. CYANOCOBALAMIN [Concomitant]
     Active Substance: CYANOCOBALAMIN
     Dosage: 2 DOSAGE FORM, QD (TAKE 2 TABLETS, ONCE DAILY, BETWEEN MEALS, BOOK...)
     Dates: start: 20251121
  9. FOLIC ACID [Concomitant]
     Active Substance: FOLIC ACID
     Indication: Ill-defined disorder
     Dosage: 1 DOSAGE FORM, QD (ONE TO BE TAKEN EACH DAY, REPEAT BLOOD TEST AFT...)
     Dates: start: 20251121
  10. FOLIC ACID [Concomitant]
     Active Substance: FOLIC ACID
     Dosage: 1 DOSAGE FORM, QD (ONE TO BE TAKEN EACH DAY, REPEAT BLOOD TEST AFT...)
     Route: 065
     Dates: start: 20251121
  11. FOLIC ACID [Concomitant]
     Active Substance: FOLIC ACID
     Dosage: 1 DOSAGE FORM, QD (ONE TO BE TAKEN EACH DAY, REPEAT BLOOD TEST AFT...)
     Route: 065
     Dates: start: 20251121
  12. FOLIC ACID [Concomitant]
     Active Substance: FOLIC ACID
     Dosage: 1 DOSAGE FORM, QD (ONE TO BE TAKEN EACH DAY, REPEAT BLOOD TEST AFT...)
     Dates: start: 20251121
  13. VERAPAMIL HYDROCHLORIDE [Concomitant]
     Active Substance: VERAPAMIL HYDROCHLORIDE
     Indication: Ill-defined disorder
     Dosage: 1 DOSAGE FORM, QD (TAKE ONE ONCE DAILY FOR 3-4 DAYS, INCREWASE TO ...)
     Dates: start: 20251203
  14. VERAPAMIL HYDROCHLORIDE [Concomitant]
     Active Substance: VERAPAMIL HYDROCHLORIDE
     Dosage: 1 DOSAGE FORM, QD (TAKE ONE ONCE DAILY FOR 3-4 DAYS, INCREWASE TO ...)
     Route: 065
     Dates: start: 20251203
  15. VERAPAMIL HYDROCHLORIDE [Concomitant]
     Active Substance: VERAPAMIL HYDROCHLORIDE
     Dosage: 1 DOSAGE FORM, QD (TAKE ONE ONCE DAILY FOR 3-4 DAYS, INCREWASE TO ...)
     Route: 065
     Dates: start: 20251203
  16. VERAPAMIL HYDROCHLORIDE [Concomitant]
     Active Substance: VERAPAMIL HYDROCHLORIDE
     Dosage: 1 DOSAGE FORM, QD (TAKE ONE ONCE DAILY FOR 3-4 DAYS, INCREWASE TO ...)
     Dates: start: 20251203
  17. BECLOMETHASONE DIPROPIONATE [Concomitant]
     Active Substance: BECLOMETHASONE DIPROPIONATE
     Indication: Ill-defined disorder
     Dosage: 1 DOSAGE FORM, BID (INHALE 1 DOSE TWICE DAILY)
     Dates: start: 20250702
  18. BECLOMETHASONE DIPROPIONATE [Concomitant]
     Active Substance: BECLOMETHASONE DIPROPIONATE
     Dosage: 1 DOSAGE FORM, BID (INHALE 1 DOSE TWICE DAILY)
     Route: 055
     Dates: start: 20250702
  19. BECLOMETHASONE DIPROPIONATE [Concomitant]
     Active Substance: BECLOMETHASONE DIPROPIONATE
     Dosage: 1 DOSAGE FORM, BID (INHALE 1 DOSE TWICE DAILY)
     Route: 055
     Dates: start: 20250702
  20. BECLOMETHASONE DIPROPIONATE [Concomitant]
     Active Substance: BECLOMETHASONE DIPROPIONATE
     Dosage: 1 DOSAGE FORM, BID (INHALE 1 DOSE TWICE DAILY)
     Dates: start: 20250702
  21. EPIPEN [Concomitant]
     Active Substance: EPINEPHRINE
     Indication: Ill-defined disorder
     Dosage: UNK (AS DIRECTED)
  22. EPIPEN [Concomitant]
     Active Substance: EPINEPHRINE
     Dosage: UNK (AS DIRECTED)
     Route: 065
  23. EPIPEN [Concomitant]
     Active Substance: EPINEPHRINE
     Dosage: UNK (AS DIRECTED)
     Route: 065
  24. EPIPEN [Concomitant]
     Active Substance: EPINEPHRINE
     Dosage: UNK (AS DIRECTED)
  25. MOMETASONE [Concomitant]
     Active Substance: MOMETASONE
     Indication: Ill-defined disorder
     Dosage: UNK, QD (SPRAY TWO PUFFS INTO EACH NOSTRIL ONCE DAILY)
     Dates: start: 20250702
  26. MOMETASONE [Concomitant]
     Active Substance: MOMETASONE
     Dosage: UNK, QD (SPRAY TWO PUFFS INTO EACH NOSTRIL ONCE DAILY)
     Route: 045
     Dates: start: 20250702
  27. MOMETASONE [Concomitant]
     Active Substance: MOMETASONE
     Dosage: UNK, QD (SPRAY TWO PUFFS INTO EACH NOSTRIL ONCE DAILY)
     Route: 045
     Dates: start: 20250702
  28. MOMETASONE [Concomitant]
     Active Substance: MOMETASONE
     Dosage: UNK, QD (SPRAY TWO PUFFS INTO EACH NOSTRIL ONCE DAILY)
     Dates: start: 20250702
  29. ALBUTEROL [Concomitant]
     Active Substance: ALBUTEROL
     Indication: Ill-defined disorder
     Dosage: UNK (ASTHMA: INHALE TWO PUFFS SLOW AND STEADY, WHEN ...)
  30. ALBUTEROL [Concomitant]
     Active Substance: ALBUTEROL
     Dosage: UNK (ASTHMA: INHALE TWO PUFFS SLOW AND STEADY, WHEN ...)
     Route: 055
  31. ALBUTEROL [Concomitant]
     Active Substance: ALBUTEROL
     Dosage: UNK (ASTHMA: INHALE TWO PUFFS SLOW AND STEADY, WHEN ...)
     Route: 055
  32. ALBUTEROL [Concomitant]
     Active Substance: ALBUTEROL
     Dosage: UNK (ASTHMA: INHALE TWO PUFFS SLOW AND STEADY, WHEN ...)
  33. DOXAZOSIN [Concomitant]
     Active Substance: DOXAZOSIN MESYLATE
     Indication: Ill-defined disorder
     Dosage: 1 DOSAGE FORM, QD (TAKE ONE TABLET DAILY FOR BLOOD PRESSURE FOR 1-...)
     Dates: start: 20251006
  34. DOXAZOSIN [Concomitant]
     Active Substance: DOXAZOSIN MESYLATE
     Dosage: 1 DOSAGE FORM, QD (TAKE ONE TABLET DAILY FOR BLOOD PRESSURE FOR 1-...)
     Route: 065
     Dates: start: 20251006
  35. DOXAZOSIN [Concomitant]
     Active Substance: DOXAZOSIN MESYLATE
     Dosage: 1 DOSAGE FORM, QD (TAKE ONE TABLET DAILY FOR BLOOD PRESSURE FOR 1-...)
     Route: 065
     Dates: start: 20251006
  36. DOXAZOSIN [Concomitant]
     Active Substance: DOXAZOSIN MESYLATE
     Dosage: 1 DOSAGE FORM, QD (TAKE ONE TABLET DAILY FOR BLOOD PRESSURE FOR 1-...)
     Dates: start: 20251006

REACTIONS (2)
  - Muscle spasms [Unknown]
  - Headache [Unknown]

NARRATIVE: CASE EVENT DATE: 20251203
